FAERS Safety Report 6061370-4 (Version None)
Quarter: 2009Q1

REPORT INFORMATION
  Report Type: 
  Country: None (occurrence: None)
  Receive Date: 20090129
  Receipt Date: 20090129
  Transmission Date: 20090719
  Serious: No
  Sender: FDA-Public Use
  Company Number: None

PATIENT
  Age: 61 Year
  Sex: Male
  Weight: 129.73 kg

DRUGS (1)
  1. VARENICLINE [Suspect]
     Indication: SMOKING CESSATION THERAPY
     Dosage: 1 TAB UD PO
     Route: 048
     Dates: start: 20080108, end: 20080116

REACTIONS (3)
  - DEPRESSION [None]
  - NAUSEA [None]
  - VOMITING [None]
